FAERS Safety Report 9921242 (Version 2)
Quarter: 2014Q1

REPORT INFORMATION
  Report Type: Spontaneous
  Country: AU (occurrence: AU)
  Receive Date: 20140225
  Receipt Date: 20140225
  Transmission Date: 20141002
  Serious: Yes (Hospitalization, Other)
  Sender: FDA-Public Use
  Company Number: AU-ORION CORPORATION ORION PHARMA-ENTC2009-0378

PATIENT
  Sex: Male

DRUGS (14)
  1. STALEVO [Suspect]
     Indication: PARKINSON^S DISEASE
     Dosage: 300 TO 400 MG PER DAY
     Route: 065
  2. STALEVO [Suspect]
     Dosage: 900 MG PER DAY (6 DIVIDED DOSES)
     Route: 065
  3. STALEVO [Suspect]
     Dosage: STRENGTH: 100/25/200
     Route: 065
     Dates: start: 2009
  4. STALEVO [Suspect]
     Dosage: STRENGTH: 200/50/200
     Route: 065
  5. STALEVO [Suspect]
     Dosage: STRENGTH: 200/50/200
     Route: 065
     Dates: start: 2011
  6. STALEVO [Suspect]
     Dosage: STRENGTH: 150/37.5/200
     Route: 065
  7. STALEVO [Suspect]
     Route: 065
  8. STALEVO [Suspect]
     Dosage: STRENGTH: 150/37.5/200
     Route: 065
  9. STALEVO [Suspect]
     Route: 065
  10. STALEVO [Suspect]
     Dosage: STRENGTH: 125/31.25/200
     Route: 065
  11. SINEMET [Suspect]
     Route: 065
  12. ANTIHYPERTENSIVES [Concomitant]
     Route: 065
  13. EFEXOR [Concomitant]
     Indication: DYSPHORIA
     Route: 065
  14. EFEXOR [Concomitant]
     Indication: DEPRESSION

REACTIONS (13)
  - Overdose [Not Recovered/Not Resolved]
  - Drug effect decreased [Not Recovered/Not Resolved]
  - Herpes zoster [Not Recovered/Not Resolved]
  - Depression [Not Recovered/Not Resolved]
  - Muscle twitching [Not Recovered/Not Resolved]
  - Agitation [Not Recovered/Not Resolved]
  - Anxiety [Not Recovered/Not Resolved]
  - Nightmare [Not Recovered/Not Resolved]
  - Insomnia [Not Recovered/Not Resolved]
  - Muscle rigidity [Unknown]
  - Tremor [Unknown]
  - Freezing phenomenon [Unknown]
  - Myocardial infarction [Unknown]
